FAERS Safety Report 4602240-5 (Version None)
Quarter: 2005Q1

REPORT INFORMATION
  Report Type: 
  Country: None (occurrence: None)
  Receive Date: 20050201
  Receipt Date: 20040407
  Transmission Date: 20050727
  Serious: Yes (Other)
  Sender: FDA-Public Use
  Company Number: 200417547BWH

PATIENT
  Age: 52 Year
  Sex: Female
  Weight: 79.3795 kg

DRUGS (4)
  1. AVELOX [Suspect]
     Dosage: 400 MG, ONCE, ORAL
     Route: 048
     Dates: start: 20040301
  2. LEVOXYL [Concomitant]
  3. MULTI-VITAMIN [Concomitant]
  4. ROBAXIN [Concomitant]

REACTIONS (5)
  - ANAPHYLACTIC REACTION [None]
  - DEPRESSED LEVEL OF CONSCIOUSNESS [None]
  - EYE SWELLING [None]
  - FEELING ABNORMAL [None]
  - HYPERHIDROSIS [None]
